FAERS Safety Report 20990163 (Version 2)
Quarter: 2022Q4

REPORT INFORMATION
  Report Type: Spontaneous
  Country: JP (occurrence: None)
  Receive Date: 20220621
  Receipt Date: 20221220
  Transmission Date: 20230113
  Serious: Yes (Other)
  Sender: FDA-Public Use
  Company Number: 2022A224623

PATIENT
  Age: 68 Year
  Sex: Female

DRUGS (3)
  1. IMFINZI [Suspect]
     Active Substance: DURVALUMAB
     Indication: Small cell lung cancer
     Dosage: EVERY THREE WEEKS
     Route: 041
  2. IMFINZI [Suspect]
     Active Substance: DURVALUMAB
     Indication: Small cell lung cancer
     Dosage: MONTHLY
     Route: 041
  3. ETOPOSIDE [Concomitant]
     Active Substance: ETOPOSIDE
     Indication: Small cell lung cancer
     Dosage: DOSE UNKNOWN, FIRST, SECOND, AND THIRD DAY OF EACH COURSE

REACTIONS (4)
  - Myelosuppression [Unknown]
  - Interstitial lung disease [Unknown]
  - Neutrophil count decreased [Unknown]
  - Decreased appetite [Unknown]
